FAERS Safety Report 5803602-0 (Version None)
Quarter: 2008Q3

REPORT INFORMATION
  Report Type: 
  Country: None (occurrence: None)
  Receive Date: 20080703
  Receipt Date: 20080623
  Transmission Date: 20090109
  Serious: Yes (Hospitalization)
  Sender: FDA-Public Use
  Company Number: 8033939

PATIENT
  Age: 69 Year
  Sex: Female

DRUGS (3)
  1. XYZALL /01530201/ [Suspect]
     Dosage: 1 DF /D; PO
     Route: 048
     Dates: start: 20080421, end: 20080502
  2. POTASSIUM CHLORIDE [Concomitant]
  3. INDAPAMIDE [Concomitant]

REACTIONS (4)
  - BRONCHITIS [None]
  - CHEST PAIN [None]
  - INFLAMMATION [None]
  - OEDEMA PERIPHERAL [None]
